FAERS Safety Report 17835517 (Version 2)
Quarter: 2020Q2

REPORT INFORMATION
  Report Type: Spontaneous
  Country: GB (occurrence: GB)
  Receive Date: 20200528
  Receipt Date: 20200622
  Transmission Date: 20200714
  Serious: Yes (Death, Hospitalization)
  Sender: FDA-Public Use
  Company Number: GB-JNJFOC-20200523357

PATIENT
  Age: 78 Year
  Weight: 74.2 kg

DRUGS (2)
  1. DARZALEX [Suspect]
     Active Substance: DARATUMUMAB
     Dosage: 400MG VIAL
     Route: 042
     Dates: start: 20200512
  2. DARZALEX [Suspect]
     Active Substance: DARATUMUMAB
     Indication: PLASMA CELL MYELOMA
     Dosage: 100MG VIAL
     Route: 042

REACTIONS (3)
  - Suspected COVID-19 [Fatal]
  - Renal failure [Fatal]
  - Plasma cell myeloma [Fatal]
